FAERS Safety Report 12903807 (Version 1)
Quarter: 2016Q4

REPORT INFORMATION
  Report Type: Spontaneous
  Country: US (occurrence: US)
  Receive Date: 20161102
  Receipt Date: 20161102
  Transmission Date: 20170207
  Serious: No
  Sender: FDA-Public Use
  Company Number: US-PERRIGO-16US018168

PATIENT
  Sex: Female

DRUGS (1)
  1. ERYTHROMYCIN. [Suspect]
     Active Substance: ERYTHROMYCIN
     Indication: EYE INFECTION
     Dosage: TINY BIT, TID
     Route: 047
     Dates: start: 20160713, end: 20160714

REACTIONS (2)
  - Condition aggravated [Unknown]
  - Eye pain [Unknown]

NARRATIVE: CASE EVENT DATE: 20160713
